FAERS Safety Report 4305592-9 (Version None)
Quarter: 2004Q1

REPORT INFORMATION
  Report Type: 
  Country: None (occurrence: None)
  Receive Date: 20040226
  Receipt Date: 20031208
  Transmission Date: 20041129
  Serious: No
  Sender: FDA-Public Use
  Company Number: US-BRISTOL-MYERS SQUIBB COMPANY-12452082

PATIENT
  Age: 27 Year
  Sex: Male
  Weight: 82 kg

DRUGS (3)
  1. ABILIFY [Suspect]
     Indication: SCHIZOPHRENIA
     Route: 048
     Dates: start: 20020101
  2. HALDOL [Concomitant]
     Dosage: MONTHLY INJECTIONS
     Dates: start: 20031101
  3. MULTI-VITAMIN [Concomitant]

REACTIONS (3)
  - PRESCRIBED OVERDOSE [None]
  - PRURITUS [None]
  - VISION BLURRED [None]
